FAERS Safety Report 10079704 (Version 2)
Quarter: 2014Q2

REPORT INFORMATION
  Report Type: Spontaneous
  Country: PT (occurrence: PT)
  Receive Date: 20140415
  Receipt Date: 20140428
  Transmission Date: 20141212
  Serious: Yes (Hospitalization, Disabling)
  Sender: FDA-Public Use
  Company Number: PT-ACTAVIS-2014-07590

PATIENT
  Age: 65 Year
  Sex: Female

DRUGS (3)
  1. ALENDRONIC ACID (UNKNOWN) [Suspect]
     Indication: OSTEOPOROSIS
     Dosage: 70 MG, 1/WEEK
     Route: 048
  2. CALCIUM CARBONATE [Concomitant]
     Indication: OSTEOPOROSIS
     Dosage: 600 MG, DAILY
     Route: 065
  3. VITAMIN D3 [Concomitant]
     Indication: OSTEOPOROSIS
     Dosage: 5600 IU ,PER WEEK
     Route: 065

REACTIONS (1)
  - Atypical femur fracture [Unknown]
